FAERS Safety Report 25193300 (Version 2)
Quarter: 2025Q2

REPORT INFORMATION
  Report Type: Report from Study
  Country: US (occurrence: US)
  Receive Date: 20250414
  Receipt Date: 20250418
  Transmission Date: 20250717
  Serious: Yes (Hospitalization, Other)
  Sender: ABBVIE
  Company Number: US-ABBVIE-6218452

PATIENT
  Age: 32 Year
  Sex: Female
  Weight: 98 kg

DRUGS (13)
  1. ARMOUR THYROID [Suspect]
     Active Substance: THYROID, PORCINE
     Indication: Hypothyroidism
     Dosage: FORM STRENGTH:60 MILLIGRAM, STOP DATE TEXT AROUND 1997 TO 1998
     Route: 048
     Dates: start: 1995
  2. ARMOUR THYROID [Suspect]
     Active Substance: THYROID, PORCINE
     Indication: Hypothyroidism
     Dosage: FORM STRENGTH:90 MILLIGRAM, STOP DATE TEXT SEVERAL WEEKS AGO
     Route: 048
     Dates: start: 2024
  3. ARMOUR THYROID [Suspect]
     Active Substance: THYROID, PORCINE
     Indication: Hypothyroidism
     Route: 048
     Dates: start: 2025, end: 20250412
  4. ARMOUR THYROID [Suspect]
     Active Substance: THYROID, PORCINE
     Indication: Hypothyroidism
     Dosage: FORM STRENGTH:75 MILLIGRAM
     Route: 048
     Dates: start: 2024, end: 2024
  5. ARMOUR THYROID [Suspect]
     Active Substance: THYROID, PORCINE
     Indication: Hypothyroidism
     Dosage: FORM STRENGTH:60 MILLIGRAM, START DATE TEXT AROUND 1999 TO 2000 AND STOP DATE TEXT AROUND 2023
     Route: 048
  6. ARMOUR THYROID [Suspect]
     Active Substance: THYROID, PORCINE
     Indication: Hypothyroidism
     Dosage: FORM STRENGTH:90 MILLIGRAM
     Route: 048
     Dates: start: 20250412
  7. ACETYLCYSTEINE [Concomitant]
     Active Substance: ACETYLCYSTEINE
     Indication: Supplementation therapy
  8. TRAMADOL [Concomitant]
     Active Substance: TRAMADOL
     Indication: Cervical spinal stenosis
  9. BACLOFEN [Concomitant]
     Active Substance: BACLOFEN
     Indication: Fibromyalgia
  10. VITAMIN D [Concomitant]
     Active Substance: VITAMIN D NOS
     Indication: Vitamin supplementation
  11. NAPROXEN [Concomitant]
     Active Substance: NAPROXEN
     Indication: Breakthrough pain
  12. FISH OIL [Concomitant]
     Active Substance: FISH OIL
     Indication: Supplementation therapy
  13. TIRZEPATIDE [Concomitant]
     Active Substance: TIRZEPATIDE
     Indication: Weight decreased

REACTIONS (14)
  - Appendicitis [Recovered/Resolved]
  - Decreased appetite [Recovering/Resolving]
  - White blood cell count increased [Not Recovered/Not Resolved]
  - Feeling cold [Recovered/Resolved]
  - Hyperhidrosis [Recovering/Resolving]
  - Thyroid hormones decreased [Recovered/Resolved]
  - Feeling hot [Not Recovered/Not Resolved]
  - Vomiting [Recovered/Resolved]
  - Expired product administered [Recovered/Resolved]
  - Product administration error [Recovered/Resolved]
  - Diarrhoea [Recovered/Resolved]
  - Fatigue [Recovering/Resolving]
  - Temperature intolerance [Recovered/Resolved]
  - Thyroid hormones decreased [Recovered/Resolved]

NARRATIVE: CASE EVENT DATE: 19950101
